FAERS Safety Report 16054537 (Version 1)
Quarter: 2019Q1

REPORT INFORMATION
  Report Type: Report from Study
  Country: US (occurrence: US)
  Receive Date: 20190309
  Receipt Date: 20190309
  Transmission Date: 20190418
  Serious: Yes (Hospitalization, Other)
  Sender: FDA-Public Use
  Company Number: US-TAKEDA-2018TUS019410

PATIENT
  Age: 0 Day
  Sex: Male
  Weight: 2.6 kg

DRUGS (1)
  1. VEDOLIZUMAB [Suspect]
     Active Substance: VEDOLIZUMAB
     Indication: CROHN^S DISEASE
     Dosage: 300 MG, UNK
     Route: 064
     Dates: start: 20160415, end: 20170419

REACTIONS (8)
  - Hypertonia [Unknown]
  - Upper respiratory tract infection [Unknown]
  - Agitation neonatal [Unknown]
  - Hypotonia [Unknown]
  - Poor feeding infant [Unknown]
  - Foetal hypokinesia [Unknown]
  - Hypertension neonatal [Unknown]
  - Jaundice neonatal [Recovered/Resolved]

NARRATIVE: CASE EVENT DATE: 20180502
